FAERS Safety Report 17621277 (Version 1)
Quarter: 2020Q2

REPORT INFORMATION
  Report Type: Spontaneous
  Country: US (occurrence: US)
  Receive Date: 20200403
  Receipt Date: 20200403
  Transmission Date: 20200713
  Serious: Yes (Life-Threatening, Hospitalization)
  Sender: FDA-Public Use
  Company Number: US-MYLANLABS-2020M1034194

PATIENT
  Age: 11 Year
  Sex: Female

DRUGS (3)
  1. SULPHAMETHOXAZOLE/TRIMETHOPRIM [Suspect]
     Active Substance: SULFAMETHOXAZOLE\TRIMETHOPRIM
     Indication: ERYTHEMA
  2. SULPHAMETHOXAZOLE/TRIMETHOPRIM [Suspect]
     Active Substance: SULFAMETHOXAZOLE\TRIMETHOPRIM
     Indication: STAPHYLOCOCCAL INFECTION
  3. SULPHAMETHOXAZOLE/TRIMETHOPRIM [Suspect]
     Active Substance: SULFAMETHOXAZOLE\TRIMETHOPRIM
     Indication: FLANK PAIN
     Route: 065

REACTIONS (7)
  - Pyrexia [Unknown]
  - Toxicity to various agents [Unknown]
  - Leukocytosis [Recovering/Resolving]
  - Blood lactic acid increased [Recovering/Resolving]
  - Hypotension [Unknown]
  - Vomiting [Recovering/Resolving]
  - C-reactive protein increased [Recovering/Resolving]
